FAERS Safety Report 26126810 (Version 2)
Quarter: 2025Q4

REPORT INFORMATION
  Report Type: Spontaneous
  Country: JP (occurrence: JP)
  Receive Date: 20251205
  Receipt Date: 20251218
  Transmission Date: 20260118
  Serious: Yes (Other)
  Sender: BOEHRINGER INGELHEIM
  Company Number: JP-Komodo Health-a23aa00000COjZlAAL

PATIENT
  Age: 10 Decade
  Sex: Female

DRUGS (1)
  1. DABIGATRAN ETEXILATE MESYLATE [Suspect]
     Active Substance: DABIGATRAN ETEXILATE MESYLATE
     Indication: Cerebrovascular accident prophylaxis

REACTIONS (5)
  - Cerebral artery embolism [Unknown]
  - Cerebral artery embolism [Unknown]
  - Cerebral artery embolism [Unknown]
  - Cerebral artery embolism [Unknown]
  - Drug ineffective [Unknown]
